FAERS Safety Report 10515218 (Version 2)
Quarter: 2014Q4

REPORT INFORMATION
  Report Type: Spontaneous
  Country: SE (occurrence: SE)
  Receive Date: 20141014
  Receipt Date: 20141202
  Transmission Date: 20150528
  Serious: Yes (Hospitalization)
  Sender: FDA-Public Use
  Company Number: SE-ROCHE-1473421

PATIENT
  Age: 93 Year
  Sex: Female

DRUGS (6)
  1. LUCENTIS [Suspect]
     Active Substance: RANIBIZUMAB
     Indication: RETINAL VEIN OCCLUSION
     Dosage: TOTAL 3 INJECTIONS. MOST RECENT DOSE RECEIVED ON 27/JUN/2014, EVERY MONTH
     Route: 050
     Dates: start: 20140502
  2. OPTIMOL [Concomitant]
     Indication: GLAUCOMA
  3. ARTELAC (HYPROMELLOSE) [Concomitant]
     Indication: DRY EYE
  4. SIMVASTATIN. [Concomitant]
     Active Substance: SIMVASTATIN
     Indication: HYPERCHOLESTEROLAEMIA
  5. XALATAN [Concomitant]
     Active Substance: LATANOPROST
     Indication: GLAUCOMA
  6. TROMBYL (ASA) [Concomitant]

REACTIONS (1)
  - Ocular ischaemic syndrome [Recovered/Resolved]

NARRATIVE: CASE EVENT DATE: 20140729
